FAERS Safety Report 25108456 (Version 1)
Quarter: 2025Q1

REPORT INFORMATION
  Report Type: Spontaneous
  Country: GB (occurrence: GB)
  Receive Date: 20250322
  Receipt Date: 20250322
  Transmission Date: 20250408
  Serious: Yes (Other)
  Sender: AUROBINDO
  Company Number: GB-MHRA-MED-202503070053214990-HDQKF

PATIENT
  Age: 27 Year
  Sex: Female
  Weight: 157 kg

DRUGS (3)
  1. ARIPIPRAZOLE [Suspect]
     Active Substance: ARIPIPRAZOLE
     Indication: Product used for unknown indication
     Route: 065
     Dates: start: 20210101
  2. BUSPIRONE [Concomitant]
     Active Substance: BUSPIRONE HYDROCHLORIDE
     Indication: Borderline personality disorder
     Route: 065
     Dates: start: 20210101
  3. CITALOPRAM [Concomitant]
     Active Substance: CITALOPRAM
     Indication: Borderline personality disorder
     Route: 065
     Dates: start: 20210101

REACTIONS (4)
  - Gambling [Not Recovered/Not Resolved]
  - Impulsive behaviour [Not Recovered/Not Resolved]
  - Hypersexuality [Not Recovered/Not Resolved]
  - Self-injurious ideation [Not Recovered/Not Resolved]

NARRATIVE: CASE EVENT DATE: 20220101
